FAERS Safety Report 10031714 (Version 1)
Quarter: 2014Q1

REPORT INFORMATION
  Report Type: Spontaneous
  Country: US (occurrence: US)
  Receive Date: 20140324
  Receipt Date: 20140324
  Transmission Date: 20141002
  Serious: No
  Sender: FDA-Public Use
  Company Number: US-PFIZER INC-2014082406

PATIENT
  Age: 64 Year
  Sex: Female
  Weight: 67.57 kg

DRUGS (5)
  1. CELEBREX [Suspect]
     Indication: ARTHRITIS
     Dosage: 200 MG, 1X/DAY
     Route: 048
     Dates: start: 201204, end: 201205
  2. TOVIAZ [Concomitant]
     Dosage: 8 MG, 1X/DAY
  3. TRAZODONE [Concomitant]
     Dosage: 100 MG, 1X/DAY
  4. NEURONTIN [Concomitant]
     Dosage: 300 MG, 3X/DAY (EVERY 8 HOURS)
  5. IMITREX [Concomitant]
     Indication: MIGRAINE
     Dosage: UNK

REACTIONS (2)
  - Drug intolerance [Unknown]
  - Abdominal discomfort [Unknown]
